FAERS Safety Report 8513015-9 (Version None)
Quarter: 2012Q3

REPORT INFORMATION
  Report Type: 
  Country: None (occurrence: None)
  Receive Date: 20120716
  Receipt Date: 20120704
  Transmission Date: 20120928
  Serious: Yes (Disabling, Other)
  Sender: FDA-Public Use
  Company Number: US-PFIZER INC-2012159666

PATIENT
  Sex: Female
  Weight: 60.9 kg

DRUGS (2)
  1. TEMSIROLIMUS [Suspect]
     Indication: EPITHELIOID SARCOMA METASTATIC
     Dosage: 20 MG/M2, WEEKLY
     Route: 042
     Dates: start: 20120531, end: 20120531
  2. OXYCODONE [Concomitant]
     Indication: PAIN
     Dosage: 5 MG, AS NEEDED
     Route: 048
     Dates: start: 20110429

REACTIONS (1)
  - OSTEOMYELITIS [None]
